FAERS Safety Report 6628432-1 (Version None)
Quarter: 2010Q1

REPORT INFORMATION
  Report Type: 
  Country: None (occurrence: None)
  Receive Date: 20100301
  Receipt Date: 20090921
  Transmission Date: 20100710
  Serious: Yes (Hospitalization, Other)
  Sender: FDA-Public Use
  Company Number: RB-20597-2009

PATIENT
  Age: 31 Year
  Sex: Male

DRUGS (4)
  1. SUBOXONE [Suspect]
     Indication: DRUG DEPENDENCE
     Dosage: 16 MG SUBLINGUAL
     Route: 060
     Dates: start: 20090501
  2. LIBRIUM [Suspect]
     Indication: ANXIETY
  3. LIBRIUM [Suspect]
     Indication: INSOMNIA
  4. ALCOHOL [Suspect]
     Indication: DRUG USE FOR UNKNOWN INDICATION

REACTIONS (4)
  - ALCOHOL POISONING [None]
  - DEPRESSED MOOD [None]
  - OVERDOSE [None]
  - ROAD TRAFFIC ACCIDENT [None]
